FAERS Safety Report 10467398 (Version 2)
Quarter: 2014Q4

REPORT INFORMATION
  Report Type: Spontaneous
  Country: US (occurrence: US)
  Receive Date: 20140922
  Receipt Date: 20141231
  Transmission Date: 20150528
  Serious: Yes (Hospitalization, Other)
  Sender: FDA-Public Use
  Company Number: US-BAYER-2014-140653

PATIENT
  Age: 27 Year
  Sex: Female
  Weight: 65.76 kg

DRUGS (6)
  1. WELLBUTRIN [Concomitant]
     Active Substance: BUPROPION HYDROCHLORIDE
     Indication: POSTPARTUM DEPRESSION
  2. MIRENA [Suspect]
     Active Substance: LEVONORGESTREL
     Indication: CONTRACEPTION
     Dosage: 20 MCG/24HR, CONT
     Route: 015
     Dates: start: 20120410, end: 20120724
  3. LEXAPRO [Concomitant]
     Active Substance: ESCITALOPRAM OXALATE
     Indication: POSTPARTUM DEPRESSION
     Dosage: UNK
     Dates: start: 201203, end: 201205
  4. TRAMADOL [Concomitant]
     Active Substance: TRAMADOL
     Indication: PAIN
     Dosage: UNK
     Dates: start: 2012
  5. EFFEXOR [Concomitant]
     Active Substance: VENLAFAXINE HYDROCHLORIDE
     Indication: POSTPARTUM DEPRESSION
     Dosage: 150 MG, UNK
     Dates: start: 201203, end: 20120419
  6. ZOLOFT [Concomitant]
     Active Substance: SERTRALINE HYDROCHLORIDE
     Indication: POSTPARTUM DEPRESSION
     Dosage: UNK
     Dates: start: 201205

REACTIONS (12)
  - Medical device discomfort [None]
  - Uterine perforation [None]
  - Depression [None]
  - Abdominal pain [None]
  - Emotional distress [None]
  - Internal injury [None]
  - Anxiety [None]
  - General physical health deterioration [None]
  - Pelvic pain [None]
  - Genital haemorrhage [None]
  - Injury [None]
  - Fear [None]

NARRATIVE: CASE EVENT DATE: 201207
